FAERS Safety Report 17926846 (Version 1)
Quarter: 2020Q2

REPORT INFORMATION
  Report Type: Report from Study
  Country: None (occurrence: CA)
  Receive Date: 20200623
  Receipt Date: 20200623
  Transmission Date: 20200714
  Serious: Yes (Other)
  Sender: FDA-Public Use
  Company Number: CA-ABBVIE-20K-028-3296200-00

PATIENT
  Age: 26 Year
  Sex: Female

DRUGS (1)
  1. HUMIRA [Suspect]
     Active Substance: ADALIMUMAB
     Indication: HIDRADENITIS
     Route: 058
     Dates: start: 20191122

REACTIONS (7)
  - Mass [Recovering/Resolving]
  - Rash papular [Not Recovered/Not Resolved]
  - Pain of skin [Recovering/Resolving]
  - Arthralgia [Not Recovered/Not Resolved]
  - Skin haemorrhage [Recovering/Resolving]
  - Omphalitis [Not Recovered/Not Resolved]
  - Umbilical haemorrhage [Not Recovered/Not Resolved]

NARRATIVE: CASE EVENT DATE: 202001
